FAERS Safety Report 20817613 (Version 2)
Quarter: 2022Q2

REPORT INFORMATION
  Report Type: Spontaneous
  Country: US (occurrence: US)
  Receive Date: 20220512
  Receipt Date: 20220524
  Transmission Date: 20220720
  Serious: Yes (Hospitalization, Other)
  Sender: FDA-Public Use
  Company Number: US-ASTELLAS-2022US016428

PATIENT
  Age: 26 Year
  Sex: Male

DRUGS (8)
  1. FLOMAX [Suspect]
     Active Substance: TAMSULOSIN HYDROCHLORIDE
     Indication: Urinary incontinence
     Dosage: UNK
     Route: 065
  2. ACETAMINOPHEN\HYDROCODONE [Concomitant]
     Active Substance: ACETAMINOPHEN\HYDROCODONE
     Indication: Oropharyngeal pain
     Dosage: UNK
     Route: 065
  3. DEXAMETHASONE [Concomitant]
     Active Substance: DEXAMETHASONE
     Indication: COVID-19 treatment
     Dosage: UNK
  4. REMDESIVIR [Concomitant]
     Active Substance: REMDESIVIR
     Indication: COVID-19 treatment
     Dosage: UNK
  5. HUMAN IMMUNOGLOBULIN G [Concomitant]
     Active Substance: HUMAN IMMUNOGLOBULIN G
     Indication: COVID-19 treatment
     Dosage: UNK
     Route: 042
  6. FENTANYL [Concomitant]
     Active Substance: FENTANYL
     Indication: Pain
     Dosage: UNK
  7. VANCOMYCIN [Concomitant]
     Active Substance: VANCOMYCIN
     Indication: COVID-19 treatment
     Dosage: UNK
  8. AZTREONAM [Concomitant]
     Active Substance: AZTREONAM
     Indication: COVID-19 treatment
     Dosage: UNK

REACTIONS (6)
  - Toxic epidermal necrolysis [Not Recovered/Not Resolved]
  - Stevens-Johnson syndrome [Not Recovered/Not Resolved]
  - Rash [Not Recovered/Not Resolved]
  - Enanthema [Not Recovered/Not Resolved]
  - Blister [Not Recovered/Not Resolved]
  - Off label use [Unknown]
